FAERS Safety Report 7832853-9 (Version None)
Quarter: 2011Q4

REPORT INFORMATION
  Report Type: 
  Country: None (occurrence: None)
  Receive Date: 20111024
  Receipt Date: 20111017
  Transmission Date: 20120403
  Serious: No
  Sender: FDA-Public Use
  Company Number: US-BIOGENIDEC-2011BI039602

PATIENT
  Age: 56 Year
  Sex: Female

DRUGS (5)
  1. AVONEX [Suspect]
     Indication: MULTIPLE SCLEROSIS
     Route: 030
     Dates: start: 20000101, end: 20060101
  2. SERZONE [Concomitant]
     Indication: TENSION
     Dates: start: 19830101
  3. SERZONE [Concomitant]
     Indication: INSOMNIA
     Dates: start: 19830101
  4. AVONEX [Suspect]
     Route: 030
     Dates: start: 20060101
  5. ^AMOTIDINE^ [Concomitant]
     Indication: ROUTINE HEALTH MAINTENANCE
     Dates: start: 19830101

REACTIONS (3)
  - DEPRESSION [None]
  - TENSION [None]
  - PARANOIA [None]
